FAERS Safety Report 25888446 (Version 4)
Quarter: 2025Q4

REPORT INFORMATION
  Report Type: Spontaneous
  Country: US (occurrence: US)
  Receive Date: 20251007
  Receipt Date: 20251230
  Transmission Date: 20260117
  Serious: Yes (Other)
  Sender: ALEXION PHARMACEUTICALS
  Company Number: US-ASTRAZENECA-202509USA027703US

PATIENT
  Sex: Female

DRUGS (2)
  1. SOLIRIS [Suspect]
     Active Substance: ECULIZUMAB
     Indication: Atypical haemolytic uraemic syndrome
     Dosage: UNK
     Route: 065
  2. PREDNISONE [Concomitant]
     Active Substance: PREDNISONE
     Dosage: UNK
     Route: 065

REACTIONS (32)
  - Chronic kidney disease [Unknown]
  - Multiple organ dysfunction syndrome [Unknown]
  - May-Thurner syndrome [Unknown]
  - Oedema peripheral [Unknown]
  - Pain in extremity [Unknown]
  - Peripheral swelling [Unknown]
  - Contusion [Unknown]
  - Muscle spasms [Unknown]
  - Inflammation [Unknown]
  - Fluid imbalance [Unknown]
  - Hypervolaemia [Unknown]
  - Swelling [Unknown]
  - Hypoaesthesia [Unknown]
  - Paraesthesia [Unknown]
  - Pain in extremity [Unknown]
  - Headache [Unknown]
  - Nausea [Unknown]
  - Urticaria [Unknown]
  - Gait disturbance [Unknown]
  - Migraine [Unknown]
  - Rhinorrhoea [Unknown]
  - Oropharyngeal pain [Unknown]
  - Blood pressure increased [Unknown]
  - Sleep disorder [Unknown]
  - Fatigue [Unknown]
  - Pyrexia [Unknown]
  - Bone pain [Unknown]
  - Myalgia [Unknown]
  - Muscular weakness [Unknown]
  - Alopecia [Unknown]
  - Vision blurred [Unknown]
  - Postural orthostatic tachycardia syndrome [Unknown]
